FAERS Safety Report 21949021 (Version 1)
Quarter: 2023Q1

REPORT INFORMATION
  Report Type: Spontaneous
  Country: AR (occurrence: AR)
  Receive Date: 20230203
  Receipt Date: 20230203
  Transmission Date: 20230418
  Serious: Yes (Other)
  Sender: FDA-Public Use
  Company Number: AR-PFIZER INC-PV202300018907

PATIENT
  Age: 18 Year
  Sex: Male

DRUGS (1)
  1. GENOTROPIN [Suspect]
     Active Substance: SOMATROPIN
     Indication: Short stature
     Dosage: 1.5 TO 2 MG 7 TIMES PER WEEK
     Dates: start: 20210914, end: 20221128

REACTIONS (2)
  - Adenoma benign [Not Recovered/Not Resolved]
  - Investigation abnormal [Not Recovered/Not Resolved]
